FAERS Safety Report 21214846 (Version 5)
Quarter: 2022Q3

REPORT INFORMATION
  Report Type: Report from Study
  Country: CA (occurrence: CA)
  Receive Date: 20220816
  Receipt Date: 20220907
  Transmission Date: 20221027
  Serious: Yes (Hospitalization, Other)
  Sender: FDA-Public Use
  Company Number: CA-BEH-2022148476

PATIENT
  Age: 75 Year
  Sex: Male
  Weight: 54.422 kg

DRUGS (13)
  1. HIZENTRA [Suspect]
     Active Substance: HUMAN IMMUNOGLOBULIN G
     Indication: Secondary immunodeficiency
     Dosage: 5 GRAM, QW
     Route: 065
     Dates: start: 20210327
  2. HIZENTRA [Suspect]
     Active Substance: HUMAN IMMUNOGLOBULIN G
     Dosage: 5 GRAM, QW
     Route: 065
  3. METHOTREXATE [Concomitant]
     Active Substance: METHOTREXATE
  4. FOLIC ACID [Concomitant]
     Active Substance: FOLIC ACID
  5. HYDROXYCHLOROQUINE [Concomitant]
     Active Substance: HYDROXYCHLOROQUINE
  6. TAMSULOSIN [Concomitant]
     Active Substance: TAMSULOSIN
  7. TELMISARTAN [Concomitant]
     Active Substance: TELMISARTAN
  8. SYNTHROID [Concomitant]
     Active Substance: LEVOTHYROXINE SODIUM
  9. FERROUS SULFATE ANHYDROUS [Concomitant]
     Active Substance: FERROUS SULFATE ANHYDROUS
  10. ASPIRIN [Concomitant]
     Active Substance: ASPIRIN
  11. FLUTICASONE [Concomitant]
     Active Substance: FLUTICASONE
  12. SPIRIVA [Concomitant]
     Active Substance: TIOTROPIUM BROMIDE MONOHYDRATE
  13. FERROUS SULFATE [Concomitant]
     Active Substance: FERROUS SULFATE

REACTIONS (10)
  - Pulmonary oedema [Unknown]
  - Dyspnoea [Unknown]
  - Dyspnoea [Unknown]
  - Dyspnoea [Unknown]
  - Pulmonary oedema [Unknown]
  - No adverse event [Unknown]
  - Therapy interrupted [Unknown]
  - Hypopnoea [Unknown]
  - Pain [Unknown]
  - Infusion site mass [Unknown]

NARRATIVE: CASE EVENT DATE: 20220819
